FAERS Safety Report 18185219 (Version 4)
Quarter: 2021Q3

REPORT INFORMATION
  Report Type: Report from Study
  Country: US (occurrence: US)
  Receive Date: 20200824
  Receipt Date: 20210714
  Transmission Date: 20211014
  Serious: Yes (Other)
  Sender: FDA-Public Use
  Company Number: US-AMGEN-USASP2020134033

PATIENT
  Sex: Female

DRUGS (3)
  1. ALLEGRA [Concomitant]
     Active Substance: FEXOFENADINE HYDROCHLORIDE
     Indication: HYPERSENSITIVITY
     Dosage: UNK
  2. BONIVA [Suspect]
     Active Substance: IBANDRONATE SODIUM
     Indication: ARTHRALGIA
     Dosage: UNK
     Route: 065
  3. PROLIA [Suspect]
     Active Substance: DENOSUMAB
     Indication: OSTEOPOROSIS POSTMENOPAUSAL
     Dosage: 60 MILLIGRAM, Q6MO
     Route: 058
     Dates: start: 20210618

REACTIONS (13)
  - Chest pain [Unknown]
  - Back pain [Unknown]
  - Drug ineffective [Unknown]
  - Spinal pain [Unknown]
  - Pain in extremity [Unknown]
  - Road traffic accident [Unknown]
  - Cough [Unknown]
  - Pain [Unknown]
  - Disturbance in attention [Unknown]
  - Anxiety [Unknown]
  - Contusion [Unknown]
  - Oropharyngeal pain [Unknown]
  - Arthralgia [Unknown]

NARRATIVE: CASE EVENT DATE: 2021
